FAERS Safety Report 17000013 (Version 1)
Quarter: 2019Q4

REPORT INFORMATION
  Report Type: Spontaneous
  Country: US (occurrence: US)
  Receive Date: 20191106
  Receipt Date: 20191106
  Transmission Date: 20200122
  Serious: Yes (Death, Other)
  Sender: FDA-Public Use
  Company Number: US-PFIZER INC-2018409152

PATIENT
  Age: 67 Year
  Sex: Female

DRUGS (1)
  1. REVATIO [Suspect]
     Active Substance: SILDENAFIL CITRATE
     Dosage: 40 MG, 3X/DAY (20 MG, 2 TABLETS, 3 TIMES A DAY)

REACTIONS (3)
  - Off label use [Unknown]
  - Product use issue [Unknown]
  - Death [Fatal]
